FAERS Safety Report 5093884-8 (Version None)
Quarter: 2006Q3

REPORT INFORMATION
  Report Type: 
  Country: None (occurrence: None)
  Receive Date: 20060831
  Receipt Date: 20060509
  Transmission Date: 20061208
  Serious: Yes (Hospitalization)
  Sender: FDA-Public Use
  Company Number: US-BAYER-200613503BWH

PATIENT
  Age: 66 Year
  Sex: Male
  Weight: 84 kg

DRUGS (14)
  1. NEXAVAR [Suspect]
     Indication: RENAL CELL CARCINOMA STAGE UNSPECIFIED
     Dosage: TOTAL DAILY DOSE: 400 MG  UNIT DOSE: 200 MG
     Route: 048
     Dates: start: 20060720
  2. NEXAVAR [Suspect]
     Dosage: TOTAL DAILY DOSE: 400 MG  UNIT DOSE: 200 MG
     Route: 048
     Dates: start: 20050901, end: 20060714
  3. NEXAVAR [Suspect]
     Dosage: TOTAL DAILY DOSE: 800 MG  UNIT DOSE: 200 MG
     Route: 048
     Dates: start: 20050901, end: 20050901
  4. MORPHINE [Concomitant]
  5. LEXAPRO [Concomitant]
  6. PREDNISONE TAB [Concomitant]
  7. LIPITOR [Concomitant]
  8. GLIPIZIDE [Concomitant]
  9. LISINOPRIL [Concomitant]
  10. GABAPENTIN [Concomitant]
  11. AMITRIPTYLINE HCL [Concomitant]
     Dates: start: 20060717
  12. NEURONTIN [Concomitant]
     Dates: start: 20060714
  13. ZIAC [Concomitant]
     Dates: start: 20060609
  14. ENALAPRIL [Concomitant]
     Dates: start: 20060703

REACTIONS (10)
  - BLOOD POTASSIUM DECREASED [None]
  - CONSTIPATION [None]
  - DEHYDRATION [None]
  - DIARRHOEA [None]
  - DISORIENTATION [None]
  - RASH [None]
  - RED BLOOD CELL COUNT DECREASED [None]
  - SPEECH DISORDER [None]
  - WHITE BLOOD CELL COUNT DECREASED [None]
  - WHITE BLOOD CELL COUNT INCREASED [None]
